FAERS Safety Report 11325348 (Version 3)
Quarter: 2016Q1

REPORT INFORMATION
  Report Type: Spontaneous
  Country: US (occurrence: US)
  Receive Date: 20150730
  Receipt Date: 20160217
  Transmission Date: 20160525
  Serious: Yes (Other)
  Sender: FDA-Public Use
  Company Number: US-LUNDBECK-DKLU2000661

PATIENT
  Sex: Female

DRUGS (5)
  1. MIDODRINE [Concomitant]
     Active Substance: MIDODRINE
     Indication: PRODUCT USED FOR UNKNOWN INDICATION
     Route: 065
  2. NORTHERA [Suspect]
     Active Substance: DROXIDOPA
     Indication: AUTONOMIC FAILURE SYNDROME
     Dosage: TITRATION B SCHEDULE
     Route: 048
  3. NORTHERA [Suspect]
     Active Substance: DROXIDOPA
     Indication: AUTONOMIC NEUROPATHY
     Route: 065
     Dates: start: 20150513
  4. ATENOLOL. [Concomitant]
     Active Substance: ATENOLOL
     Indication: PRODUCT USED FOR UNKNOWN INDICATION
     Route: 065
  5. PAIN MEDICATION [Concomitant]
     Active Substance: UNSPECIFIED INGREDIENT
     Indication: PAIN
     Route: 065

REACTIONS (8)
  - Nausea [Unknown]
  - Road traffic accident [Unknown]
  - Syncope [Unknown]
  - Somnolence [Unknown]
  - Migraine [Unknown]
  - Dizziness [Recovered/Resolved]
  - Pneumonia [Recovered/Resolved]
  - Palpitations [Unknown]
